FAERS Safety Report 20549369 (Version 1)
Quarter: 2022Q1

REPORT INFORMATION
  Report Type: Spontaneous
  Country: US (occurrence: US)
  Receive Date: 20220303
  Receipt Date: 20220303
  Transmission Date: 20220423
  Serious: No
  Sender: FDA-Public Use
  Company Number: US-ALLERGAN-2136918US

PATIENT
  Sex: Male
  Weight: 74.83 kg

DRUGS (6)
  1. RESTASIS [Suspect]
     Active Substance: CYCLOSPORINE
     Indication: Dry eye
     Dosage: 2 GTT, BID
     Route: 047
     Dates: start: 2012
  2. BUDESONIDE [Suspect]
     Active Substance: BUDESONIDE
     Indication: Product used for unknown indication
  3. CORTICOSTEROID NOS [Concomitant]
     Active Substance: CORTICOSTEROID NOS
     Indication: Adrenal insufficiency
     Dosage: LOW DOSE
     Dates: start: 202008
  4. FAMOTIDINE [Concomitant]
     Active Substance: FAMOTIDINE
     Indication: Gastrooesophageal reflux disease
     Dosage: UNK
  5. HYDROCORTISONE [Concomitant]
     Active Substance: HYDROCORTISONE
     Indication: Adrenal insufficiency
     Dosage: 2.5 MG, BID
  6. CEQUA [Concomitant]
     Active Substance: CYCLOSPORINE
     Indication: Dry eye
     Dosage: UNK
     Route: 047
     Dates: start: 2021

REACTIONS (5)
  - Epistaxis [Recovered/Resolved]
  - Haemoglobin decreased [Unknown]
  - Adrenal insufficiency [Not Recovered/Not Resolved]
  - Gastrooesophageal reflux disease [Not Recovered/Not Resolved]
  - Body height decreased [Not Recovered/Not Resolved]

NARRATIVE: CASE EVENT DATE: 20180101
